FAERS Safety Report 8160730-5 (Version None)
Quarter: 2012Q1

REPORT INFORMATION
  Report Type: 
  Country: None (occurrence: None)
  Receive Date: 20120223
  Receipt Date: 20120210
  Transmission Date: 20120608
  Serious: Yes (Hospitalization)
  Sender: FDA-Public Use
  Company Number: PHEH2012US001713

PATIENT
  Sex: Female
  Weight: 42.68 kg

DRUGS (2)
  1. OCTREOTIDE ACETATE [Suspect]
     Indication: SCLERODERMA
  2. OCTREOTIDE ACETATE [Suspect]
     Indication: CROHN'S DISEASE
     Dosage: 100 UG, BID
     Route: 058

REACTIONS (4)
  - DEHYDRATION [None]
  - DELIRIUM [None]
  - FREQUENT BOWEL MOVEMENTS [None]
  - RENAL FAILURE CHRONIC [None]
